FAERS Safety Report 9841074 (Version 1)
Quarter: 2013Q4

REPORT INFORMATION
  Report Type: Spontaneous
  Country: US (occurrence: None)
  Receive Date: 20131219
  Receipt Date: 20131219
  Transmission Date: 20140711
  Serious: Yes (Hospitalization, Other)
  Sender: FDA-Public Use
  Company Number: 163-20785-12090956

PATIENT
  Age: 73 Year
  Sex: Male
  Weight: 90.72 kg

DRUGS (6)
  1. THALOMID [Suspect]
     Indication: PLASMA CELL MYELOMA
     Dosage: 100 MG, 1 IN 1 D, PO
     Route: 048
     Dates: start: 20120725, end: 20120801
  2. DEXAMETHASONE (DEXAMETHASONE) (UNKNOWN) [Concomitant]
  3. LISINOPRIL (LISINOPRIL) (UNKNOWN) [Concomitant]
  4. METOPROLOL (METOPROLOL) (UNKNOWN) [Concomitant]
  5. ACE INHIBITOR (UNKNOWN) [Concomitant]
  6. HYTRIN (TERAZOSIN HYDROCHLORIDE) (UNKNOWN) [Concomitant]

REACTIONS (6)
  - Heart rate increased [None]
  - Blood pressure increased [None]
  - Chills [None]
  - Cardiac failure congestive [None]
  - Tremor [None]
  - Fatigue [None]
